FAERS Safety Report 20180851 (Version 2)
Quarter: 2022Q1

REPORT INFORMATION
  Report Type: Spontaneous
  Country: US (occurrence: US)
  Receive Date: 20211214
  Receipt Date: 20220131
  Transmission Date: 20220423
  Serious: Yes (Hospitalization)
  Sender: FDA-Public Use
  Company Number: US-Accord-247151

PATIENT
  Age: 66 Year
  Sex: Female
  Weight: 155.6 kg

DRUGS (1)
  1. DOCETAXEL [Suspect]
     Active Substance: DOCETAXEL
     Indication: Breast cancer
     Dosage: 250ML SODIUM CHLORIDE 0.9% SOLUTION
     Route: 042
     Dates: start: 20191121

REACTIONS (1)
  - Dacryostenosis acquired [Unknown]
